FAERS Safety Report 6420225-3 (Version None)
Quarter: 2009Q4

REPORT INFORMATION
  Report Type: 
  Country: None (occurrence: None)
  Receive Date: 20091029
  Receipt Date: 20091021
  Transmission Date: 20100525
  Serious: Yes (Other)
  Sender: FDA-Public Use
  Company Number: PHEH2009US14242

PATIENT
  Sex: Male
  Weight: 87.528 kg

DRUGS (5)
  1. SANDOSTATIN LAR [Suspect]
     Indication: ACROMEGALY
     Dosage: 30 MG, Q28 DAYS
     Route: 030
     Dates: start: 20081211
  2. CELEBREX [Concomitant]
     Dosage: 20 MG, DAILY
  3. BUSPIRONE HCL [Concomitant]
     Dosage: 15 MG, BID
  4. PREVACID [Concomitant]
     Dosage: 30 MG, DAILY
  5. CABERGOLINE [Concomitant]
     Dosage: 0.5 MG, BIW

REACTIONS (4)
  - FACIAL PALSY [None]
  - HEMIPARESIS [None]
  - MUSCULAR WEAKNESS [None]
  - PERONEAL NERVE PALSY [None]
